FAERS Safety Report 5300185-9 (Version None)
Quarter: 2007Q2

REPORT INFORMATION
  Report Type: 
  Country: None (occurrence: None)
  Receive Date: 20070411
  Receipt Date: 20070403
  Transmission Date: 20071010
  Serious: Yes (Hospitalization, Other)
  Sender: FDA-Public Use
  Company Number: 012168

PATIENT
  Age: 68 Year
  Sex: Female

DRUGS (3)
  1. METOCLOPRAMIDE [Suspect]
     Indication: GASTROOESOPHAGEAL REFLUX DISEASE
     Dosage: 5 MG, QID, ORAL
     Route: 048
     Dates: start: 20070324, end: 20070325
  2. NEXIUM [Concomitant]
  3. PREDNISONE TAB [Concomitant]

REACTIONS (5)
  - ANAPHYLACTIC REACTION [None]
  - ANGIOEDEMA [None]
  - ASTHENIA [None]
  - SWOLLEN TONGUE [None]
  - TARDIVE DYSKINESIA [None]
